FAERS Safety Report 23857368 (Version 3)
Quarter: 2024Q3

REPORT INFORMATION
  Report Type: Other
  Country: NI (occurrence: NI)
  Receive Date: 20240515
  Receipt Date: 20240906
  Transmission Date: 20241016
  Serious: No
  Sender: TOLMAR
  Company Number: NI-TOLMAR, INC.-24NI047976

PATIENT
  Age: 9 Year
  Sex: Female

DRUGS (6)
  1. ELIGARD [Suspect]
     Active Substance: LEUPROLIDE ACETATE
     Indication: Precocious puberty
     Dosage: 45 MILLIGRAM, Q 6 MONTH
     Route: 058
     Dates: start: 20231110
  2. ELIGARD [Suspect]
     Active Substance: LEUPROLIDE ACETATE
     Indication: Precocious puberty
     Dosage: 22.5 MILLIGRAM, EVERY 9 WEEKS
     Route: 058
     Dates: start: 20240325
  3. ELIGARD [Suspect]
     Active Substance: LEUPROLIDE ACETATE
     Indication: Precocious puberty
     Dosage: UNK
  4. METHYLPHENIDATE [Concomitant]
     Active Substance: METHYLPHENIDATE
     Indication: Attention deficit hyperactivity disorder
     Dosage: 30 MILLIGRAM, QD
  5. UNSPECIFIED INGREDIENT [Concomitant]
     Active Substance: UNSPECIFIED INGREDIENT
     Indication: Product used for unknown indication
     Dosage: UNK, Q 12 HR
  6. PIRACEBRAL [Concomitant]
     Indication: Cerebral disorder
     Dosage: UNK, QD

REACTIONS (3)
  - Acne [Not Recovered/Not Resolved]
  - Breast enlargement [Not Recovered/Not Resolved]
  - Drug ineffective [Not Recovered/Not Resolved]

NARRATIVE: CASE EVENT DATE: 20240101
